FAERS Safety Report 21934809 (Version 1)
Quarter: 2023Q1

REPORT INFORMATION
  Report Type: Spontaneous
  Country: US (occurrence: US)
  Receive Date: 20230201
  Receipt Date: 20230201
  Transmission Date: 20230417
  Serious: No
  Sender: FDA-Public Use
  Company Number: US-ELI_LILLY_AND_COMPANY-US202301011520

PATIENT
  Sex: Male

DRUGS (1)
  1. LYUMJEV [Suspect]
     Active Substance: INSULIN LISPRO-AABC
     Indication: Type 1 diabetes mellitus
     Dosage: 30 U, DAILY
     Route: 065

REACTIONS (5)
  - Blood glucose increased [Unknown]
  - COVID-19 [Recovering/Resolving]
  - Lung disorder [Unknown]
  - Lyme disease [Recovering/Resolving]
  - Drug ineffective [Unknown]
